FAERS Safety Report 22370896 (Version 3)
Quarter: 2023Q2

REPORT INFORMATION
  Report Type: Report from Study
  Country: GB (occurrence: GB)
  Receive Date: 20230526
  Receipt Date: 20230623
  Transmission Date: 20230722
  Serious: No
  Sender: FDA-Public Use
  Company Number: GB-002147023-NVSC2023GB119596

PATIENT
  Sex: Male

DRUGS (2)
  1. OMNITROPE [Suspect]
     Active Substance: SOMATROPIN
     Indication: Hypopituitarism
     Dosage: 0.2 MG, QD (OD) (SANDOZ LTD) 5 CARTRIDGE
     Route: 058
     Dates: start: 20230221
  2. OMNITROPE [Suspect]
     Active Substance: SOMATROPIN
     Dosage: 0.10 MG, QD (OD) (SANDOZ LTD) 5 CARTRIDGE
     Route: 058

REACTIONS (4)
  - Depressed mood [Recovering/Resolving]
  - Hypoglycaemia [Unknown]
  - Anxiety [Unknown]
  - Mental disorder [Unknown]
